FAERS Safety Report 14666172 (Version 2)
Quarter: 2018Q2

REPORT INFORMATION
  Report Type: Spontaneous
  Country: BR (occurrence: BR)
  Receive Date: 20180321
  Receipt Date: 20180404
  Transmission Date: 20180711
  Serious: Yes (Hospitalization, Disabling)
  Sender: FDA-Public Use
  Company Number: BR-B.I. PHARMACEUTICALS,INC./RIDGEFIELD-2018-BI-014940

PATIENT
  Age: 71 Year
  Sex: Female

DRUGS (5)
  1. ATENSINA [Suspect]
     Active Substance: CLONIDINE
     Indication: HYPERTENSION
     Route: 048
     Dates: end: 201802
  2. BUSCOPAN COMPOSTO [Concomitant]
     Active Substance: BUTYLSCOPOLAMINE BROMIDE\METAMIZOLE SODIUM
     Indication: PRODUCT USED FOR UNKNOWN INDICATION
     Dosage: 10+250 MG
     Route: 048
     Dates: start: 20180328
  3. APRESOLINA [Suspect]
     Active Substance: HYDRALAZINE HYDROCHLORIDE
     Indication: DIURETIC THERAPY
     Route: 048
     Dates: start: 201803
  4. LASIX [Suspect]
     Active Substance: FUROSEMIDE
     Indication: DIURETIC THERAPY
     Dosage: STRENGTH: 40MG, 2 TABLETS TWICE DAILY
     Route: 048
     Dates: start: 20180210
  5. ATENSINA [Suspect]
     Active Substance: CLONIDINE
     Route: 048
     Dates: start: 201803

REACTIONS (7)
  - Hypotension [Unknown]
  - Pollakiuria [Not Recovered/Not Resolved]
  - Feeling abnormal [Unknown]
  - Pleural effusion [Not Recovered/Not Resolved]
  - Renal pain [Not Recovered/Not Resolved]
  - Fatigue [Unknown]
  - Swelling [Unknown]

NARRATIVE: CASE EVENT DATE: 20180123
